FAERS Safety Report 24415791 (Version 1)
Quarter: 2024Q4

REPORT INFORMATION
  Report Type: Spontaneous
  Country: CH (occurrence: CH)
  Receive Date: 20241009
  Receipt Date: 20241009
  Transmission Date: 20250115
  Serious: Yes (Hospitalization, Other)
  Sender: RANBAXY
  Company Number: CH-SUN PHARMACEUTICAL INDUSTRIES LTD-2024R1-472023

PATIENT
  Age: 46 Year
  Sex: Female

DRUGS (10)
  1. DICLOFENAC [Suspect]
     Active Substance: DICLOFENAC
     Indication: Cough
     Dosage: 75 MILLIGRAM
     Route: 065
  2. MORPHINE [Suspect]
     Active Substance: MORPHINE
     Indication: Cough
     Dosage: 10 MILLIGRAM
     Route: 065
  3. LORAZEPAM [Suspect]
     Active Substance: LORAZEPAM
     Indication: Cough
     Dosage: 2 MILLIGRAM
     Route: 065
  4. CLONIDINE [Suspect]
     Active Substance: CLONIDINE
     Indication: Cough
     Dosage: 150 MICROGRAM
     Route: 065
  5. GABAPENTIN [Suspect]
     Active Substance: GABAPENTIN
     Indication: Cough
     Dosage: 1800 MILLIGRAM
     Route: 065
  6. ALBUTEROL\IPRATROPIUM BROMIDE [Suspect]
     Active Substance: ALBUTEROL\IPRATROPIUM BROMIDE
     Indication: Cough
     Route: 065
  7. BACLOFEN [Suspect]
     Active Substance: BACLOFEN
     Indication: Cough
     Dosage: 30 MILLIGRAM
     Route: 065
  8. CODEINE [Suspect]
     Active Substance: CODEINE
     Indication: Cough
     Dosage: 200 MILLIGRAM
     Route: 065
  9. FAMOTIDINE [Suspect]
     Active Substance: FAMOTIDINE
     Indication: Cough
     Dosage: 20 MILLIGRAM
     Route: 065
  10. DEXLANSOPRAZOLE [Suspect]
     Active Substance: DEXLANSOPRAZOLE
     Indication: Cough
     Dosage: 240 MILLIGRAM
     Route: 065

REACTIONS (6)
  - Overdose [Unknown]
  - Ventricular extrasystoles [Unknown]
  - Condition aggravated [Unknown]
  - Transaminases increased [Unknown]
  - Hypokalaemia [Unknown]
  - Hypocalcaemia [Unknown]
